FAERS Safety Report 20611688 (Version 2)
Quarter: 2022Q1

REPORT INFORMATION
  Report Type: Report from Study
  Country: NL (occurrence: NL)
  Receive Date: 20220318
  Receipt Date: 20220325
  Transmission Date: 20220424
  Serious: Yes (Hospitalization)
  Sender: FDA-Public Use
  Company Number: NL-JNJFOC-20220325903

PATIENT
  Age: 38 Year
  Sex: Female

DRUGS (12)
  1. IBRUTINIB [Suspect]
     Active Substance: IBRUTINIB
     Indication: Chronic lymphocytic leukaemia
     Route: 048
     Dates: start: 20210802, end: 20220307
  2. VENETOCLAX [Suspect]
     Active Substance: VENETOCLAX
     Indication: Chronic lymphocytic leukaemia
     Route: 065
     Dates: start: 20210802, end: 20211024
  3. VENETOCLAX [Suspect]
     Active Substance: VENETOCLAX
     Route: 065
     Dates: start: 20211025, end: 20211220
  4. VENETOCLAX [Suspect]
     Active Substance: VENETOCLAX
     Route: 065
     Dates: start: 20220104, end: 20220116
  5. VENETOCLAX [Suspect]
     Active Substance: VENETOCLAX
     Route: 065
     Dates: start: 20220117, end: 20220214
  6. BACTROBAN [Concomitant]
     Active Substance: MUPIROCIN\MUPIROCIN CALCIUM
     Indication: Paronychia
     Route: 065
     Dates: start: 20220301, end: 20220307
  7. PREDNISOLONE [Concomitant]
     Active Substance: PREDNISOLONE
     Indication: Gout
     Route: 065
     Dates: start: 20220304, end: 20220306
  8. ENBREL [Concomitant]
     Active Substance: ETANERCEPT
     Indication: Product used for unknown indication
     Dosage: 50MG/ML PEN 1 ML.
     Route: 065
     Dates: start: 20220214, end: 20220225
  9. PIROXICAM [Concomitant]
     Active Substance: PIROXICAM
     Indication: Ankylosing spondylitis
     Route: 065
     Dates: start: 20220214, end: 20220307
  10. OXYCODONE [Concomitant]
     Active Substance: OXYCODONE
     Indication: Pain in extremity
     Dosage: 2DD1 ZN.
     Route: 065
     Dates: start: 20220301, end: 20220307
  11. TRAMADOL [Concomitant]
     Active Substance: TRAMADOL
     Indication: Ankylosing spondylitis
     Route: 065
     Dates: start: 20220214, end: 20220307
  12. VENTOLIN [Concomitant]
     Active Substance: ALBUTEROL SULFATE
     Indication: Product used for unknown indication

REACTIONS (1)
  - Cellulitis [Recovered/Resolved]

NARRATIVE: CASE EVENT DATE: 20220228
